FAERS Safety Report 11325792 (Version 1)
Quarter: 2015Q3

REPORT INFORMATION
  Report Type: Spontaneous
  Country: GB (occurrence: GB)
  Receive Date: 20150731
  Receipt Date: 20150731
  Transmission Date: 20151125
  Serious: Yes (Other)
  Sender: FDA-Public Use
  Company Number: GB-ACCORD-032485

PATIENT
  Age: 62 Year
  Sex: Female
  Weight: 96 kg

DRUGS (13)
  1. SIMVASTATIN. [Suspect]
     Active Substance: SIMVASTATIN
     Indication: PRODUCT USED FOR UNKNOWN INDICATION
     Dates: start: 20150710
  2. ALLOPURINOL. [Concomitant]
     Active Substance: ALLOPURINOL
     Dates: start: 20150202
  3. NAPROXEN. [Concomitant]
     Active Substance: NAPROXEN
     Dates: start: 20140303
  4. CODEINE [Concomitant]
     Active Substance: CODEINE
     Dosage: 1-2 AS NEEDED, 4 TIMES A DAY
     Dates: start: 20140210
  5. FULTIUM-D3 [Concomitant]
     Dates: start: 20141205
  6. OMEPRAZOLE. [Concomitant]
     Active Substance: OMEPRAZOLE
     Dates: start: 20140303
  7. HYDROXYCHLOROQUINE/HYDROXYCHLOROQUINE PHOSPHATE/HYDROXYCHLOROQUINE SULFATE [Concomitant]
     Dates: start: 20150105
  8. LORAZEPAM. [Concomitant]
     Active Substance: LORAZEPAM
     Dates: start: 20150710
  9. PARACETAMOL [Concomitant]
     Active Substance: ACETAMINOPHEN
     Dates: start: 20131230
  10. PENICILLAMINE [Concomitant]
     Active Substance: PENICILLAMINE
     Dates: start: 20110208
  11. FOLIC ACID. [Concomitant]
     Active Substance: FOLIC ACID
     Dates: start: 20140805
  12. TERBINAFINE/TERBINAFINE HYDROCHLORIDE [Concomitant]
     Dates: start: 20150702
  13. METHOTREXATE [Concomitant]
     Active Substance: METHOTREXATE
     Dates: start: 20140709

REACTIONS (1)
  - Pain [Recovered/Resolved]

NARRATIVE: CASE EVENT DATE: 20150710
